FAERS Safety Report 18540288 (Version 1)
Quarter: 2020Q4

REPORT INFORMATION
  Report Type: Spontaneous
  Country: US (occurrence: US)
  Receive Date: 20201124
  Receipt Date: 20201124
  Transmission Date: 20210114
  Serious: No
  Sender: FDA-Public Use
  Company Number: None

PATIENT
  Age: 78 Year
  Sex: Female
  Weight: 81.27 kg

DRUGS (15)
  1. NOVOLOG [Concomitant]
     Active Substance: INSULIN ASPART
  2. ALBUTEROL HFA [Concomitant]
     Active Substance: ALBUTEROL SULFATE
  3. VITAMIN B12 [Concomitant]
     Active Substance: CYANOCOBALAMIN
  4. METOPROLOL. [Concomitant]
     Active Substance: METOPROLOL
  5. SERTRALINE [Concomitant]
     Active Substance: SERTRALINE HYDROCHLORIDE
  6. ATORVASTATIN [Concomitant]
     Active Substance: ATORVASTATIN
  7. IBUPROFEN. [Concomitant]
     Active Substance: IBUPROFEN
  8. ALECENSA [Suspect]
     Active Substance: ALECTINIB HYDROCHLORIDE
     Indication: LUNG CARCINOMA CELL TYPE UNSPECIFIED STAGE 0
     Route: 048
     Dates: start: 20201001
  9. ACETAMINOPHEN. [Concomitant]
     Active Substance: ACETAMINOPHEN
  10. ASPIRIN. [Concomitant]
     Active Substance: ASPIRIN
  11. MULTIVITAMIN [Concomitant]
     Active Substance: VITAMINS
  12. BASAGLAR KWIKPEN [Concomitant]
     Active Substance: INSULIN GLARGINE
  13. NITROGLYCERIN. [Concomitant]
     Active Substance: NITROGLYCERIN
  14. CALCIUM 500 +D [Concomitant]
  15. VITAMIN D3 [Concomitant]
     Active Substance: CHOLECALCIFEROL

REACTIONS (6)
  - Face oedema [None]
  - Constipation [None]
  - Feeling abnormal [None]
  - Drug intolerance [None]
  - Dyspnoea [None]
  - Nausea [None]

NARRATIVE: CASE EVENT DATE: 20201124
